FAERS Safety Report 7180331-5 (Version None)
Quarter: 2010Q4

REPORT INFORMATION
  Report Type: 
  Country: None (occurrence: None)
  Receive Date: 20101221
  Receipt Date: 20101210
  Transmission Date: 20110411
  Serious: Yes (Hospitalization, Congenital Anomaly)
  Sender: FDA-Public Use
  Company Number: A0871950A

PATIENT
  Sex: Male

DRUGS (3)
  1. PAXIL [Suspect]
  2. MARIJUANA [Concomitant]
  3. CRACK COCAINE [Concomitant]

REACTIONS (4)
  - DRUG EXPOSURE DURING PREGNANCY [None]
  - DYSMORPHISM [None]
  - FALLOT'S TETRALOGY [None]
  - HYPOSPADIAS [None]
